FAERS Safety Report 5004679-5 (Version None)
Quarter: 2006Q2

REPORT INFORMATION
  Report Type: 
  Country: None (occurrence: None)
  Receive Date: 20060517
  Receipt Date: 20060508
  Transmission Date: 20061013
  Serious: Yes (Hospitalization)
  Sender: FDA-Public Use
  Company Number: ES-ABBOTT-06P-151-0332739-00

PATIENT
  Sex: Male

DRUGS (6)
  1. HUMIRA [Suspect]
     Indication: POLYCHONDRITIS
     Route: 058
     Dates: start: 20060210
  2. METHYLPREDNISOLONE [Concomitant]
     Indication: POLYCHONDRITIS
     Route: 048
     Dates: end: 20060502
  3. METHYLPREDNISOLONE [Concomitant]
     Dates: start: 20060502
  4. ALENDRONATE SODIUM [Concomitant]
     Indication: DRUG USE FOR UNKNOWN INDICATION
  5. LEKOVIT CA [Concomitant]
     Indication: DRUG USE FOR UNKNOWN INDICATION
     Dosage: 2500MG/8MG
  6. LEKOVIT CA [Concomitant]

REACTIONS (1)
  - PULMONARY EMBOLISM [None]
